FAERS Safety Report 7457807-6 (Version None)
Quarter: 2011Q2

REPORT INFORMATION
  Report Type: 
  Country: None (occurrence: None)
  Receive Date: 20110504
  Receipt Date: 20110421
  Transmission Date: 20111010
  Serious: Yes (Other)
  Sender: FDA-Public Use
  Company Number: PHHY2011FR20249

PATIENT
  Sex: Female
  Weight: 60 kg

DRUGS (5)
  1. LERCAN [Concomitant]
     Indication: HYPERTENSION
     Dosage: 10 MG, DAILY
     Route: 048
     Dates: start: 20060601
  2. STAGID [Concomitant]
     Indication: TYPE 2 DIABETES MELLITUS
     Dosage: 700 MG, DAILY
     Route: 048
  3. AMARYL [Concomitant]
     Indication: TYPE 2 DIABETES MELLITUS
     Dosage: 4 MG, DAILY
     Route: 048
  4. COAPROVEL [Concomitant]
     Dosage: 1 DF, UNK
     Dates: start: 20110302
  5. RASILEZ HCT [Suspect]
     Indication: HYPERTENSION
     Dosage: ALISKIREN 300MG AND HYDROCHLOROTHIAZIDE12.5MG (ONE TABLET DAILY)
     Route: 048
     Dates: start: 20110222, end: 20110301

REACTIONS (5)
  - RENAL PAIN [None]
  - BUNDLE BRANCH BLOCK [None]
  - CYTOLYTIC HEPATITIS [None]
  - HEPATIC STEATOSIS [None]
  - BLOOD PRESSURE INADEQUATELY CONTROLLED [None]
